FAERS Safety Report 25340936 (Version 1)
Quarter: 2025Q2

REPORT INFORMATION
  Report Type: Spontaneous
  Country: US (occurrence: US)
  Receive Date: 20250521
  Receipt Date: 20250521
  Transmission Date: 20250716
  Serious: No
  Sender: IPSEN BIOPHARMACEUTICALS, INC.
  Company Number: US-IPSEN Group, Research and Development-2025-11823

PATIENT
  Sex: Female

DRUGS (1)
  1. SOMATULINE DEPOT [Suspect]
     Active Substance: LANREOTIDE ACETATE
     Indication: Acromegaly
     Dosage: SOMATULINE DEPOT PFS?60MG/.2ML
     Route: 058
     Dates: start: 201805

REACTIONS (3)
  - Dizziness postural [Unknown]
  - Anger [Unknown]
  - Emotional disorder [Unknown]
